FAERS Safety Report 9634980 (Version 2)
Quarter: 2013Q4

REPORT INFORMATION
  Report Type: Spontaneous
  Country: US (occurrence: US)
  Receive Date: 20131021
  Receipt Date: 20131021
  Transmission Date: 20140711
  Serious: No
  Sender: FDA-Public Use
  Company Number: US-PURDUE-USA-2013-0102017

PATIENT
  Age: 61 Year
  Sex: Female
  Weight: 90.7 kg

DRUGS (10)
  1. BUTRANS [Suspect]
     Indication: BACK PAIN
     Dosage: 5 MCG/HR, WEEKLY
     Route: 062
     Dates: start: 20130402, end: 201305
  2. BUTRANS [Suspect]
     Indication: ARTHRALGIA
  3. BUTRANS [Suspect]
     Indication: INFLAMMATION
  4. NEURONTIN [Concomitant]
     Indication: PRODUCT USED FOR UNKNOWN INDICATION
     Dosage: UNK
     Route: 048
  5. HYDROCHLOROTHIAZIDE [Concomitant]
     Indication: PRODUCT USED FOR UNKNOWN INDICATION
     Dosage: UNK
     Route: 048
  6. METOPROLOL TARTRATE [Concomitant]
     Indication: PRODUCT USED FOR UNKNOWN INDICATION
     Dosage: UNK
     Route: 048
  7. PRANDIN                            /01393601/ [Concomitant]
     Indication: PRODUCT USED FOR UNKNOWN INDICATION
     Dosage: UNK
     Route: 048
  8. VOLTAREN                           /00372301/ [Concomitant]
     Indication: BACK PAIN
     Dosage: 1% GEL PRN
     Route: 061
     Dates: start: 201305
  9. VOLTAREN                           /00372301/ [Concomitant]
     Indication: ARTHRALGIA
  10. VOLTAREN                           /00372301/ [Concomitant]
     Indication: INFLAMMATION

REACTIONS (14)
  - Heart rate increased [Unknown]
  - Neck pain [Not Recovered/Not Resolved]
  - Back pain [Unknown]
  - Pain in extremity [Not Recovered/Not Resolved]
  - Application site pain [Unknown]
  - Drug administered at inappropriate site [Unknown]
  - Respiratory rate decreased [Unknown]
  - Dizziness [Unknown]
  - Insomnia [Unknown]
  - Dyspnoea [Not Recovered/Not Resolved]
  - Chest pain [Not Recovered/Not Resolved]
  - Hypoaesthesia [Not Recovered/Not Resolved]
  - Asthenia [Unknown]
  - Muscular weakness [Not Recovered/Not Resolved]
